FAERS Safety Report 24757091 (Version 1)
Quarter: 2024Q4

REPORT INFORMATION
  Report Type: Spontaneous
  Country: JP (occurrence: JP)
  Receive Date: 20241220
  Receipt Date: 20241220
  Transmission Date: 20250115
  Serious: Yes (Hospitalization, Other)
  Sender: TAKEDA
  Company Number: JP-TAKEDA-2024TJP016893

PATIENT
  Age: 8 Decade

DRUGS (1)
  1. FRUZAQLA [Suspect]
     Active Substance: FRUQUINTINIB
     Indication: Colon cancer
     Dosage: 5 MILLIGRAM

REACTIONS (4)
  - Hypothyroidism [Unknown]
  - Colon cancer [Unknown]
  - Muscular weakness [Not Recovered/Not Resolved]
  - Diarrhoea [Unknown]
